FAERS Safety Report 13378162 (Version 1)
Quarter: 2017Q1

REPORT INFORMATION
  Report Type: Spontaneous
  Country: DE (occurrence: DE)
  Receive Date: 20170328
  Receipt Date: 20170328
  Transmission Date: 20170429
  Serious: Yes (Other)
  Sender: FDA-Public Use
  Company Number: DE-GLENMARK PHARMACEUTICALS-2017GMK026903

PATIENT

DRUGS (2)
  1. ROPINIROL GLENMARK 2MG FILMTABLETTEN [Suspect]
     Active Substance: ROPINIROLE
     Indication: PARKINSON^S DISEASE
     Dosage: 4 MG, QD
     Route: 048
  2. ROPINIROL GLENMARK 2MG FILMTABLETTEN [Suspect]
     Active Substance: ROPINIROLE
     Dosage: 2 MG, OD IN EVENING
     Route: 048
     Dates: start: 20170320

REACTIONS (10)
  - Gastrointestinal erosion [Not Recovered/Not Resolved]
  - Intentional product use issue [Unknown]
  - Hyperhidrosis [Recovering/Resolving]
  - Abdominal discomfort [Not Recovered/Not Resolved]
  - Nausea [Recovering/Resolving]
  - Dizziness [Recovering/Resolving]
  - Pallor [Recovering/Resolving]
  - Abdominal pain upper [Not Recovered/Not Resolved]
  - Vomiting [Recovering/Resolving]
  - Dyspepsia [Not Recovered/Not Resolved]

NARRATIVE: CASE EVENT DATE: 20170320
